FAERS Safety Report 4609735-9 (Version None)
Quarter: 2005Q1

REPORT INFORMATION
  Report Type: 
  Country: None (occurrence: None)
  Receive Date: 20050314
  Receipt Date: 20050307
  Transmission Date: 20050727
  Serious: Yes (Disabling)
  Sender: FDA-Public Use
  Company Number: 26318

PATIENT
  Age: 24 Year
  Sex: Female

DRUGS (2)
  1. ALDARA [Suspect]
     Indication: CONDYLOMA ACUMINATUM
     Dosage: TOPICAL
     Route: 061
     Dates: start: 20050111, end: 20050118
  2. WARTICON [Concomitant]

REACTIONS (3)
  - APPLICATION SITE PAIN [None]
  - GENITAL PAIN FEMALE [None]
  - SKIN REACTION [None]
